FAERS Safety Report 14704482 (Version 1)
Quarter: 2018Q2

REPORT INFORMATION
  Report Type: Spontaneous
  Country: CH (occurrence: CH)
  Receive Date: 20180402
  Receipt Date: 20180402
  Transmission Date: 20180711
  Serious: Yes (Other)
  Sender: FDA-Public Use
  Company Number: CH-TEVA-2018-CH-874806

PATIENT
  Age: 0 Year
  Sex: Male
  Weight: 1.55 kg

DRUGS (12)
  1. BILOL [Suspect]
     Active Substance: BISOPROLOL
     Route: 064
     Dates: start: 201706
  2. IMMUNOGLOBULINES HUMAINES CNTS [Suspect]
     Active Substance: HUMAN IMMUNOGLOBULIN G
     Indication: POLYMYOSITIS
     Route: 064
     Dates: start: 2017, end: 201706
  3. NOPIL [Suspect]
     Active Substance: SULFAMETHOXAZOLE\TRIMETHOPRIM
     Route: 064
  4. AZATHIOPRINE. [Suspect]
     Active Substance: AZATHIOPRINE
     Indication: POLYMYOSITIS
     Route: 064
  5. LISINOPRIL. [Suspect]
     Active Substance: LISINOPRIL
     Route: 064
     Dates: start: 2017, end: 201706
  6. CELECOXIB MEPHA [Suspect]
     Active Substance: CELECOXIB
     Route: 064
     Dates: end: 20170818
  7. TAPENTADOL [Suspect]
     Active Substance: TAPENTADOL
     Route: 064
     Dates: end: 201706
  8. TARGIN [Suspect]
     Active Substance: NALOXONE HYDROCHLORIDE\OXYCODONE HYDROCHLORIDE
     Route: 064
  9. RIOPAN (MAGALDRAT) [Suspect]
     Active Substance: MAGALDRATE
     Route: 064
  10. RANITIDINE. [Suspect]
     Active Substance: RANITIDINE
     Route: 064
     Dates: start: 2017
  11. PREDNISONE. [Suspect]
     Active Substance: PREDNISONE
     Indication: POLYMYOSITIS
     Route: 064
     Dates: start: 2017
  12. TACROLIMUS. [Suspect]
     Active Substance: TACROLIMUS
     Indication: POLYMYOSITIS
     Route: 064
     Dates: start: 2017

REACTIONS (2)
  - Premature baby [Recovered/Resolved]
  - Maternal exposure during pregnancy [Recovered/Resolved]

NARRATIVE: CASE EVENT DATE: 201706
